FAERS Safety Report 7191966-8 (Version None)
Quarter: 2010Q4

REPORT INFORMATION
  Report Type: 
  Country: None (occurrence: None)
  Receive Date: 20101223
  Receipt Date: 20100820
  Transmission Date: 20110411
  Serious: No
  Sender: FDA-Public Use
  Company Number: US-AMGEN-KDL432898

PATIENT

DRUGS (18)
  1. ENBREL [Suspect]
     Indication: PRODUCT USED FOR UNKNOWN INDICATION
     Dosage: 50 MG, QWK
     Route: 058
  2. DULOXETIME HYDROCHLORIDE [Concomitant]
     Dosage: 60 MG, UNK
  3. SPIRONOLACTONE [Concomitant]
     Dosage: 100 MG, UNK
  4. CARISOPRODOL [Concomitant]
     Dosage: 350 MG, UNK
  5. FUROSEMIDE [Concomitant]
     Dosage: 40 MG, UNK
  6. MEGESTROL ACETATE [Concomitant]
     Dosage: 40 MG, UNK
  7. GABAPENTIN [Concomitant]
     Dosage: 600 MG, UNK
  8. SALSALATE [Concomitant]
     Dosage: 750 MG, UNK
  9. RANITIDINE HYDROCHLORIDE [Concomitant]
     Dosage: 150 MG, UNK
  10. AZATHIOPRINE [Concomitant]
     Dosage: 50 MG, UNK
  11. SALBUTAMOL [Concomitant]
  12. FLUTICASONE/SALMETEROL [Concomitant]
  13. ESOMEPRAZOLE MAGNESIUM [Concomitant]
     Dosage: 40 MG, UNK
  14. QUETIAPINE [Concomitant]
     Dosage: 300 MG, UNK
  15. IBUPROFEN [Concomitant]
     Dosage: 200 MG, UNK
  16. BUPRENORPHINE [Concomitant]
     Dosage: 8 MG, UNK
  17. QUININE [Concomitant]
     Dosage: 324 MG, UNK
  18. ASPIRIN [Concomitant]
     Dosage: 81 MG, UNK

REACTIONS (1)
  - ALOPECIA [None]
